FAERS Safety Report 17220379 (Version 2)
Quarter: 2020Q1

REPORT INFORMATION
  Report Type: Spontaneous
  Country: JP (occurrence: JP)
  Receive Date: 20191231
  Receipt Date: 20200114
  Transmission Date: 20200409
  Serious: Yes (Other)
  Sender: FDA-Public Use
  Company Number: JP-ASTRAZENECA-2019SF86840

PATIENT
  Age: 80 Year
  Sex: Female

DRUGS (3)
  1. OMEPRAL [Suspect]
     Active Substance: OMEPRAZOLE
     Indication: PROPHYLAXIS AGAINST GASTROINTESTINAL ULCER
     Dosage: 10.0MG UNKNOWN
     Route: 048
  2. PLETAAL [Suspect]
     Active Substance: CILOSTAZOL
     Dosage: DOSE UNKNOWN
     Route: 065
  3. BAYASPIRIN [Suspect]
     Active Substance: ASPIRIN
     Dosage: DOSE UNKNOWN
     Route: 065

REACTIONS (4)
  - Gastric ulcer haemorrhage [Unknown]
  - Drug ineffective [Unknown]
  - Melaena [Unknown]
  - Hypotension [Unknown]
